FAERS Safety Report 9601135 (Version 2)
Quarter: 2013Q4

REPORT INFORMATION
  Report Type: Spontaneous
  Country: US (occurrence: US)
  Receive Date: 20131004
  Receipt Date: 20131004
  Transmission Date: 20140711
  Serious: No
  Sender: FDA-Public Use
  Company Number: US-AMGEN-USASP2013034877

PATIENT
  Age: 35 Year
  Sex: Male
  Weight: 81.63 kg

DRUGS (5)
  1. ENBREL [Suspect]
     Indication: PSORIASIS
     Dosage: 50 MG, 2 TIMES/WK
     Route: 058
     Dates: start: 20070712, end: 200803
  2. CLOBETASOL [Concomitant]
     Dosage: UNK
  3. LEVOTHYROXIN [Concomitant]
     Dosage: UNK
  4. HUMIRA [Concomitant]
     Dosage: UNK
  5. STELARA [Concomitant]
     Dosage: UNK

REACTIONS (2)
  - Drug ineffective [Unknown]
  - Acne [Recovered/Resolved]
